FAERS Safety Report 14624754 (Version 3)
Quarter: 2018Q2

REPORT INFORMATION
  Report Type: Spontaneous
  Country: US (occurrence: US)
  Receive Date: 20180312
  Receipt Date: 20180417
  Transmission Date: 20180711
  Serious: No
  Sender: FDA-Public Use
  Company Number: US-PFIZER INC-2018100301

PATIENT
  Age: 62 Year
  Sex: Female
  Weight: 62.14 kg

DRUGS (3)
  1. EUCRISA [Suspect]
     Active Substance: CRISABOROLE
     Indication: DERMATITIS ATOPIC
     Dosage: TWICE A DAY AS SPOTS APPEAR; ONCE IN THE MORNING AND ONCE IN THE EVENING
     Route: 061
     Dates: start: 201802
  2. EUCRISA [Suspect]
     Active Substance: CRISABOROLE
     Indication: ECZEMA NUMMULAR
     Dosage: UNK, AS NEEDED (APPLY TWICE DAILY)
     Route: 061
     Dates: start: 201802, end: 201803
  3. HYDROXYZINE PAM [Concomitant]
     Active Substance: HYDROXYZINE PAMOATE
     Indication: ANTIALLERGIC THERAPY
     Dosage: 25 MG, TAKES 2 AT BEDTIME
     Route: 048
     Dates: start: 2000

REACTIONS (2)
  - Drug ineffective [Recovered/Resolved]
  - Memory impairment [Recovered/Resolved]

NARRATIVE: CASE EVENT DATE: 201802
